FAERS Safety Report 8997631 (Version 5)
Quarter: 2013Q4

REPORT INFORMATION
  Report Type: Spontaneous
  Country: US (occurrence: US)
  Receive Date: 20130104
  Receipt Date: 20131106
  Transmission Date: 20140711
  Serious: Yes (Hospitalization, Disabling, Other)
  Sender: FDA-Public Use
  Company Number: US-MERCK-1301USA000695

PATIENT
  Sex: Female
  Weight: 96.15 kg

DRUGS (6)
  1. FOSAMAX [Suspect]
     Indication: OSTEOPENIA
     Dosage: 10 MG, QD
     Route: 048
     Dates: start: 199802, end: 200408
  2. FOSAMAX [Suspect]
     Indication: OSTEOPOROSIS
     Dosage: 70 MG, QW
     Route: 048
     Dates: start: 200408, end: 200604
  3. ALENDRONATE SODIUM [Suspect]
     Indication: OSTEOPOROSIS
     Dosage: 70 MG, QW
     Route: 048
     Dates: start: 200805, end: 201009
  4. ALENDRONATE SODIUM [Suspect]
     Dosage: UNK
     Route: 048
     Dates: end: 201102
  5. FORTEO [Suspect]
     Indication: OSTEOPOROSIS
     Dosage: 20 MICROGRAM, QD
     Dates: start: 200604, end: 200804
  6. VITAMINS (UNSPECIFIED) [Concomitant]
     Dosage: UNK, QD
     Route: 048
     Dates: start: 1995

REACTIONS (44)
  - Femur fracture [Unknown]
  - Intramedullary rod insertion [Unknown]
  - Femur fracture [Recovered/Resolved]
  - Intramedullary rod insertion [Unknown]
  - Osteoporosis [Unknown]
  - Femur fracture [Unknown]
  - Femur fracture [Unknown]
  - Femur fracture [Unknown]
  - Open reduction of fracture [Unknown]
  - Hip fracture [Unknown]
  - Hip arthroplasty [Unknown]
  - Knee arthroplasty [Unknown]
  - Shoulder arthroplasty [Unknown]
  - Joint arthroplasty [Unknown]
  - Hip fracture [Unknown]
  - Knee arthroplasty [Unknown]
  - Joint arthroplasty [Unknown]
  - Hip arthroplasty [Unknown]
  - Spinal fracture [Unknown]
  - Hypertension [Unknown]
  - Herpes zoster [Unknown]
  - Dental implantation [Unknown]
  - Tooth extraction [Unknown]
  - Oral surgery [Unknown]
  - Fall [Unknown]
  - Bone loss [Unknown]
  - Osteolysis [Unknown]
  - Osteolysis [Unknown]
  - Anaemia postoperative [Unknown]
  - Arthritis [Unknown]
  - Spondylolisthesis [Unknown]
  - Fall [Unknown]
  - Osteoarthritis [Unknown]
  - Spinal osteoarthritis [Unknown]
  - Arthritis [Unknown]
  - Lymphadenopathy [Unknown]
  - Pulmonary mass [Unknown]
  - Atelectasis [Unknown]
  - Vertebral column mass [Unknown]
  - Tenodesis [Unknown]
  - Scapula fracture [Unknown]
  - Bursitis [Unknown]
  - Tendon disorder [Unknown]
  - Tendon disorder [Unknown]
